FAERS Safety Report 18899701 (Version 2)
Quarter: 2021Q1

REPORT INFORMATION
  Report Type: Report from Study
  Country: EG (occurrence: EG)
  Receive Date: 20210216
  Receipt Date: 20210226
  Transmission Date: 20210420
  Serious: Yes (Other)
  Sender: FDA-Public Use
  Company Number: NVSC2021EG029749

PATIENT
  Age: 57 Year
  Sex: Female

DRUGS (6)
  1. AROMASINE [Concomitant]
     Active Substance: EXEMESTANE
     Indication: PRODUCT USED FOR UNKNOWN INDICATION
     Dosage: UNK
     Route: 065
  2. AFINITOR [Suspect]
     Active Substance: EVEROLIMUS
     Indication: BRAIN CANCER METASTATIC
     Dosage: 5 MG (2 TABLETS PER DAY)
     Route: 048
     Dates: start: 20200908, end: 20210103
  3. KETOSTERIL [Concomitant]
     Active Substance: AMINO ACIDS, SOURCE UNSPECIFIED
     Indication: RENAL DISORDER
     Dosage: 2 DF, QD
     Route: 065
  4. DEXAMETHASONE. [Concomitant]
     Active Substance: DEXAMETHASONE
     Indication: PRODUCT USED FOR UNKNOWN INDICATION
     Dosage: UNK (2 CM PER DAY)
     Route: 065
  5. RIVAROSPIRE [Concomitant]
     Indication: PRODUCT USED FOR UNKNOWN INDICATION
     Dosage: 10 MG, QD
     Route: 065
     Dates: start: 2019
  6. URSOPLUS [Concomitant]
     Indication: HEPATIC ENZYME ABNORMAL
     Dosage: 3 DF, QD
     Route: 065

REACTIONS (7)
  - Product dose omission issue [Recovered/Resolved]
  - Rash [Recovering/Resolving]
  - Liver function test increased [Recovering/Resolving]
  - Drug ineffective [Not Recovered/Not Resolved]
  - Renal impairment [Recovering/Resolving]
  - Blood urea increased [Recovering/Resolving]
  - Blood creatinine increased [Recovering/Resolving]

NARRATIVE: CASE EVENT DATE: 20200928
